FAERS Safety Report 4836888-X (Version None)
Quarter: 2005Q4

REPORT INFORMATION
  Report Type: 
  Country: None (occurrence: None)
  Receive Date: 20051123
  Receipt Date: 20051118
  Transmission Date: 20060501
  Serious: Yes (Hospitalization)
  Sender: FDA-Public Use
  Company Number: US-MERCK-0511USA03510

PATIENT
  Age: 46 Year
  Sex: Male
  Weight: 77 kg

DRUGS (3)
  1. VIOXX [Suspect]
     Indication: EPICONDYLITIS
     Route: 048
  2. LIPITOR [Concomitant]
     Route: 065
  3. ACCUPRIL [Concomitant]
     Route: 065

REACTIONS (1)
  - CEREBROVASCULAR ACCIDENT [None]
